FAERS Safety Report 5108270-1 (Version None)
Quarter: 2006Q3

REPORT INFORMATION
  Report Type: 
  Country: None (occurrence: None)
  Receive Date: 20060919
  Receipt Date: 20051003
  Transmission Date: 20061208
  Serious: No
  Sender: FDA-Public Use
  Company Number: US-BRISTOL-MYERS SQUIBB COMPANY-13128798

PATIENT
  Age: 50 Year
  Sex: Female
  Weight: 56 kg

DRUGS (1)
  1. MEGACE [Suspect]
     Route: 048
     Dates: start: 20040801

REACTIONS (7)
  - CONSTIPATION [None]
  - DISTURBANCE IN ATTENTION [None]
  - FLATULENCE [None]
  - MOOD SWINGS [None]
  - NIGHT SWEATS [None]
  - VISION BLURRED [None]
  - WEIGHT INCREASED [None]
